FAERS Safety Report 9543477 (Version 4)
Quarter: 2014Q2

REPORT INFORMATION
  Report Type: Report from Study
  Country: DE (occurrence: DE)
  Receive Date: 20130923
  Receipt Date: 20140508
  Transmission Date: 20141212
  Serious: Yes (Hospitalization)
  Sender: FDA-Public Use
  Company Number: DE-ROCHE-1278861

PATIENT
  Age: 43 Year
  Sex: Female
  Weight: 78 kg

DRUGS (2)
  1. VEMURAFENIB [Suspect]
     Indication: METASTATIC MALIGNANT MELANOMA
     Dosage: DATE OF MOST RECENT DOSE OF VEMURAFENIB PRIOR TO SAE 02/OCT/2013.
     Route: 048
     Dates: start: 20130723, end: 20131002
  2. VEMURAFENIB [Suspect]
     Route: 048
     Dates: start: 20131008

REACTIONS (2)
  - Abscess [Not Recovered/Not Resolved]
  - General physical health deterioration [Recovered/Resolved with Sequelae]
